FAERS Safety Report 20112196 (Version 1)
Quarter: 2021Q4

REPORT INFORMATION
  Report Type: Spontaneous
  Country: US (occurrence: US)
  Receive Date: 20211125
  Receipt Date: 20211125
  Transmission Date: 20220303
  Serious: Yes (Hospitalization, Other)
  Sender: FDA-Public Use
  Company Number: US-NOVOPROD-869311

PATIENT

DRUGS (1)
  1. OZEMPIC [Suspect]
     Active Substance: SEMAGLUTIDE
     Indication: Product used for unknown indication
     Dosage: 0.5 MG
     Route: 058
     Dates: start: 202108, end: 202110

REACTIONS (2)
  - Pancreatic failure [Not Recovered/Not Resolved]
  - Feeding tube user [Not Recovered/Not Resolved]

NARRATIVE: CASE EVENT DATE: 20210101
